FAERS Safety Report 14108092 (Version 1)
Quarter: 2017Q4

REPORT INFORMATION
  Report Type: Spontaneous
  Country: GB (occurrence: GB)
  Receive Date: 20171019
  Receipt Date: 20171019
  Transmission Date: 20180321
  Serious: Yes (Death)
  Sender: FDA-Public Use
  Company Number: GB-PFIZER INC-2017446813

PATIENT
  Age: 41 Year
  Sex: Male

DRUGS (13)
  1. ZOPICLONE [Suspect]
     Active Substance: ZOPICLONE
     Dosage: UNK
  2. ALCOHOL. [Concomitant]
     Active Substance: ALCOHOL
     Dosage: UNK
  3. ALPRAZOLAM. [Suspect]
     Active Substance: ALPRAZOLAM
     Dosage: UNK
  4. DIAZEPAM. [Suspect]
     Active Substance: DIAZEPAM
     Dosage: UNK
  5. ZAPONEX [Suspect]
     Active Substance: CLOZAPINE
     Indication: SCHIZOPHRENIA
     Dosage: UNK
     Route: 048
     Dates: start: 20130919, end: 20160108
  6. MIRTAZAPINE. [Concomitant]
     Active Substance: MIRTAZAPINE
     Dosage: UNK
  7. SERTRALINE [Concomitant]
     Active Substance: SERTRALINE HYDROCHLORIDE
     Dosage: UNK
  8. TEMAZEPAM. [Suspect]
     Active Substance: TEMAZEPAM
     Dosage: UNK
  9. COCAINE [Suspect]
     Active Substance: COCAINE
     Dosage: UNK
  10. ZAPONEX [Suspect]
     Active Substance: CLOZAPINE
     Dosage: UNK
     Route: 048
     Dates: start: 20160608, end: 20170711
  11. LEVAMISOLE [Concomitant]
     Active Substance: LEVAMISOLE
     Dosage: UNK
  12. METHADONE [Suspect]
     Active Substance: METHADONE HYDROCHLORIDE
     Dosage: UNK
  13. OXAZEPAM. [Suspect]
     Active Substance: OXAZEPAM
     Dosage: UNK

REACTIONS (2)
  - Toxicity to various agents [Fatal]
  - Neutrophil count increased [Not Recovered/Not Resolved]

NARRATIVE: CASE EVENT DATE: 20170704
